FAERS Safety Report 5753180-X (Version None)
Quarter: 2008Q2

REPORT INFORMATION
  Report Type: 
  Country: None (occurrence: None)
  Receive Date: 20080530
  Receipt Date: 20080528
  Transmission Date: 20081010
  Serious: Yes (Hospitalization)
  Sender: FDA-Public Use
  Company Number: JP-BRISTOL-MYERS SQUIBB COMPANY-14194492

PATIENT
  Age: 81 Year
  Sex: Male

DRUGS (3)
  1. PARAPLATIN [Suspect]
     Indication: LIP AND/OR ORAL CAVITY CANCER
     Route: 013
  2. NITROGLYCERIN [Concomitant]
     Indication: PROPHYLAXIS
     Route: 013
  3. PREDONINE [Concomitant]
     Indication: PROPHYLAXIS
     Route: 013

REACTIONS (2)
  - OEDEMA [None]
  - TRACHEAL STENOSIS [None]
